FAERS Safety Report 4420386-1 (Version None)
Quarter: 2004Q3

REPORT INFORMATION
  Report Type: 
  Country: None (occurrence: None)
  Receive Date: 20040809
  Receipt Date: 20040217
  Transmission Date: 20050211
  Serious: No
  Sender: FDA-Public Use
  Company Number: US-GLAXOSMITHKLINE-A0498525A

PATIENT
  Age: 65 Year
  Sex: Female

DRUGS (3)
  1. PAXIL CR [Suspect]
     Indication: PANIC DISORDER
     Dosage: 12.5MGM PER DAY
     Route: 048
     Dates: start: 20030201
  2. CARISOPRODOL [Concomitant]
  3. ALEVE [Concomitant]

REACTIONS (6)
  - ARTHRALGIA [None]
  - BACK PAIN [None]
  - FLUID RETENTION [None]
  - MUSCLE TWITCHING [None]
  - MYALGIA [None]
  - URINARY RETENTION [None]
